FAERS Safety Report 4280621-X (Version None)
Quarter: 2004Q1

REPORT INFORMATION
  Report Type: 
  Country: None (occurrence: None)
  Receive Date: 20040127
  Receipt Date: 20040115
  Transmission Date: 20041129
  Serious: Yes (Life-Threatening)
  Sender: FDA-Public Use
  Company Number: 04H-163-0247452-00

PATIENT
  Age: 60 Year
  Sex: Male

DRUGS (1)
  1. ULTIVA [Suspect]
     Indication: ANALGESIC THERAPY
     Dosage: TOTAL DOSE 10 MCG, INTRAVENOUS
     Route: 042
     Dates: start: 20040101, end: 20040101

REACTIONS (2)
  - APNOEA [None]
  - CARDIAC ARREST [None]
